FAERS Safety Report 6791626-9 (Version None)
Quarter: 2010Q2

REPORT INFORMATION
  Report Type: 
  Country: None (occurrence: None)
  Receive Date: 20100624
  Receipt Date: 20100618
  Transmission Date: 20101027
  Serious: Yes (Death)
  Sender: FDA-Public Use
  Company Number: US-GILEAD-2010-0029985

PATIENT
  Sex: Female
  Weight: 66.284 kg

DRUGS (12)
  1. LETAIRIS [Suspect]
     Indication: PULMONARY ARTERIAL HYPERTENSION
     Route: 048
     Dates: start: 20090615
  2. OXYGEN [Concomitant]
  3. ASPIRIN [Concomitant]
  4. LASIX [Concomitant]
  5. METOPROLOL TARTRATE [Concomitant]
  6. LIPITOR [Concomitant]
  7. ALBUTEROL [Concomitant]
  8. MUCINEX [Concomitant]
  9. ACCOLATE [Concomitant]
  10. CALCIUM STOOL SOFTNER [Concomitant]
  11. CALCIUM CARBONATE [Concomitant]
  12. POTASSIUM [Concomitant]

REACTIONS (1)
  - DEATH [None]
